FAERS Safety Report 6976291-X (Version None)
Quarter: 2010Q3

REPORT INFORMATION
  Report Type: 
  Country: None (occurrence: None)
  Receive Date: 20100910
  Receipt Date: 20090416
  Transmission Date: 20110219
  Serious: No
  Sender: FDA-Public Use
  Company Number: US-WYE-H08987109

PATIENT
  Sex: Female

DRUGS (7)
  1. PRISTIQ [Suspect]
     Indication: DEPRESSION
     Route: 048
     Dates: start: 20090415, end: 20090415
  2. TOPROL-XL [Concomitant]
  3. KEFLEX [Concomitant]
  4. HYDROCHLOROTHIAZIDE [Concomitant]
  5. LUMIGAN [Concomitant]
  6. VALIUM [Concomitant]
  7. LISINOPRIL [Concomitant]

REACTIONS (3)
  - CONDITION AGGRAVATED [None]
  - DIABETES MELLITUS [None]
  - INSOMNIA [None]
